FAERS Safety Report 6245420-8 (Version None)
Quarter: 2009Q2

REPORT INFORMATION
  Report Type: 
  Country: None (occurrence: None)
  Receive Date: 20090619
  Receipt Date: 20090319
  Transmission Date: 20091009
  Serious: No
  Sender: FDA-Public Use
  Company Number: ALL1-2009-00741

PATIENT
  Age: 42 Year
  Sex: Female
  Weight: 86.2 kg

DRUGS (10)
  1. VYVANSE [Suspect]
     Dosage: 30 MG, ONE DOSE, ORAL
     Route: 048
     Dates: start: 20090311, end: 20090311
  2. LEVOXYL [Concomitant]
  3. MELATONIN (MELATONIN) [Concomitant]
  4. IRON (IRON) [Concomitant]
  5. FOLIC ACID [Concomitant]
  6. ERGOCALCIFEROL [Concomitant]
  7. VITAMIN B12 [Concomitant]
  8. VITAMIN B6 [Concomitant]
  9. NIACIN [Concomitant]
  10. UNSPECIFIED HERBAL [Concomitant]

REACTIONS (4)
  - DRUG DIVERSION [None]
  - DRY MOUTH [None]
  - HEART RATE INCREASED [None]
  - INSOMNIA [None]
